FAERS Safety Report 9481644 (Version 2)
Quarter: 2013Q3

REPORT INFORMATION
  Report Type: Spontaneous
  Country: US (occurrence: US)
  Receive Date: 20130828
  Receipt Date: 20130828
  Transmission Date: 20140515
  Serious: Yes (Hospitalization)
  Sender: FDA-Public Use
  Company Number: US-AMGEN-KDL178144

PATIENT
  Age: 59 Year
  Sex: Female

DRUGS (12)
  1. ENBREL [Suspect]
     Indication: RHEUMATOID ARTHRITIS
     Dosage: 50 MG, QWK
     Route: 058
     Dates: start: 20040201, end: 200510
  2. METHOTREXATE [Concomitant]
     Dosage: 25 MG, 2 TIMES/WK
     Route: 058
     Dates: start: 199912
  3. LEFLUNOMIDE [Concomitant]
     Dosage: 20 MG, QD
     Route: 048
     Dates: start: 2005
  4. ERGOCALCIFEROL [Concomitant]
  5. ALENDRONATE SODIUM [Concomitant]
  6. ALPRAZOLAM [Concomitant]
     Dosage: 1 MG, BID
  7. PREDNISONE [Concomitant]
     Dosage: 5 MG, QD
  8. MORPHINE SULFATE [Concomitant]
     Dosage: 30 MG, Q12H
  9. HYDROCODONE BITARTRATE AND ACETAMINOPHEN [Concomitant]
     Dosage: 10 MG, PRN
  10. NICOTINE TRANSDERMAL [Concomitant]
     Dosage: 14 MG, QD
     Route: 062
  11. BUPROPION [Concomitant]
  12. CALCIUM [Concomitant]

REACTIONS (23)
  - Streptococcal infection [Recovering/Resolving]
  - Clostridial infection [Recovering/Resolving]
  - Sepsis [Recovering/Resolving]
  - Osteomyelitis [Recovering/Resolving]
  - Tooth abscess [Recovering/Resolving]
  - Pneumonia [Recovering/Resolving]
  - Cellulitis [Recovering/Resolving]
  - Osteopenia [Recovering/Resolving]
  - Therapeutic response decreased [Unknown]
  - Stress [Unknown]
  - Mental status changes [Unknown]
  - Anxiety [Unknown]
  - Homicidal ideation [Unknown]
  - Tooth fracture [Unknown]
  - Sjogren^s syndrome [Unknown]
  - Dupuytren^s contracture [Unknown]
  - Drug screen positive [Unknown]
  - Blood glucose increased [Recovered/Resolved]
  - Abdominal discomfort [Recovered/Resolved]
  - Viral infection [Unknown]
  - Diarrhoea [Unknown]
  - Depression [Unknown]
  - Injection site reaction [Unknown]
